FAERS Safety Report 6651813-7 (Version None)
Quarter: 2010Q1

REPORT INFORMATION
  Report Type: 
  Country: None (occurrence: None)
  Receive Date: 20100323
  Receipt Date: 20100310
  Transmission Date: 20100710
  Serious: Yes (Hospitalization, Other)
  Sender: FDA-Public Use
  Company Number: 229-20484-09121761

PATIENT
  Sex: Male
  Weight: 2.22 kg

DRUGS (3)
  1. INNOHEP [Suspect]
     Indication: DRUG EXPOSURE DURING PREGNANCY
     Dosage: MOTHER'S DOSE WAS 4500 IU DAILY, TRANSPLACENTAL
     Route: 064
     Dates: start: 20070404, end: 20070714
  2. PETHIDIN (PETHIDINE HYDROCHLORIDE) [Concomitant]
  3. STEMETIL (PROCHLORPERAZINE) [Concomitant]

REACTIONS (2)
  - MATERNAL DRUGS AFFECTING FOETUS [None]
  - PREMATURE BABY [None]
